FAERS Safety Report 25697982 (Version 1)
Quarter: 2025Q3

REPORT INFORMATION
  Report Type: Spontaneous
  Country: US (occurrence: US)
  Receive Date: 20250819
  Receipt Date: 20250819
  Transmission Date: 20251020
  Serious: No
  Sender: SANOFI AVENTIS
  Company Number: US-SA-2025SA240102

PATIENT
  Sex: Male

DRUGS (7)
  1. DUPIXENT [Suspect]
     Active Substance: DUPILUMAB
     Indication: Asthma
     Dosage: 300 MG, QOW
     Route: 058
  2. LOSARTAN POTASSIUM [Concomitant]
     Active Substance: LOSARTAN POTASSIUM
  3. PRAVASTATIN [Concomitant]
     Active Substance: PRAVASTATIN
  4. ALBUTEROL [Concomitant]
     Active Substance: ALBUTEROL
  5. MONTELUKAST [Concomitant]
     Active Substance: MONTELUKAST
  6. SYMBICORT [Concomitant]
     Active Substance: BUDESONIDE\FORMOTEROL FUMARATE DIHYDRATE
  7. TELMISARTAN [Concomitant]
     Active Substance: TELMISARTAN

REACTIONS (1)
  - Product dose omission in error [Unknown]
